FAERS Safety Report 14719986 (Version 2)
Quarter: 2018Q2

REPORT INFORMATION
  Report Type: Spontaneous
  Country: IR (occurrence: IR)
  Receive Date: 20180405
  Receipt Date: 20180425
  Transmission Date: 20180711
  Serious: Yes (Hospitalization, Other)
  Sender: FDA-Public Use
  Company Number: IR-ACCORD-065374

PATIENT
  Age: 60 Year
  Sex: Female

DRUGS (4)
  1. METHOTREXATE. [Suspect]
     Active Substance: METHOTREXATE
     Indication: DERMATOMYOSITIS
  2. GLIBENCLAMIDE [Concomitant]
     Active Substance: GLYBURIDE
     Indication: DIABETES MELLITUS
  3. PREDNISOLONE. [Suspect]
     Active Substance: PREDNISOLONE
     Indication: DERMATOMYOSITIS
  4. METFORMIN [Concomitant]
     Active Substance: METFORMIN HYDROCHLORIDE
     Indication: DIABETES MELLITUS

REACTIONS (10)
  - Pyrexia [Unknown]
  - Hyperglycaemia [Recovered/Resolved]
  - Hypotension [Unknown]
  - Tachycardia [Unknown]
  - Loss of consciousness [Unknown]
  - Leukocytosis [Unknown]
  - Strongyloidiasis [Recovered/Resolved]
  - Azotaemia [Recovered/Resolved]
  - Hyponatraemia [Unknown]
  - Shock [Recovered/Resolved]
